FAERS Safety Report 9458172 (Version 1)
Quarter: 2013Q3

REPORT INFORMATION
  Report Type: Spontaneous
  Country: US (occurrence: US)
  Receive Date: 20130814
  Receipt Date: 20130814
  Transmission Date: 20140515
  Serious: Yes (Hospitalization)
  Sender: FDA-Public Use
  Company Number: PHHY2013US085315

PATIENT
  Age: 71 Year
  Sex: Female

DRUGS (2)
  1. ASCRIPTIN BUFFERED REG STRENGTH TABLETS [Suspect]
     Indication: ANTICOAGULANT THERAPY
     Dosage: 1 DF, QD
  2. ACETYLSALICYLIC ACID [Suspect]

REACTIONS (4)
  - Spinal column stenosis [Not Recovered/Not Resolved]
  - Arthritis [Not Recovered/Not Resolved]
  - Neuralgia [Not Recovered/Not Resolved]
  - Hypoaesthesia [Recovered/Resolved]
